FAERS Safety Report 8202077-4 (Version None)
Quarter: 2012Q1

REPORT INFORMATION
  Report Type: 
  Country: None (occurrence: None)
  Receive Date: 20120312
  Receipt Date: 20120307
  Transmission Date: 20120608
  Serious: Yes (Hospitalization, Other)
  Sender: FDA-Public Use
  Company Number: US-MERCK-1111USA01288

PATIENT
  Age: 72 Year
  Sex: Female

DRUGS (1)
  1. FOSAMAX [Suspect]
     Indication: OSTEOPOROSIS
     Route: 048
     Dates: start: 20011001, end: 20070401

REACTIONS (10)
  - INTERVERTEBRAL DISC DEGENERATION [None]
  - DEHYDRATION [None]
  - BONE DISORDER [None]
  - TOOTH DISORDER [None]
  - OSTEOMYELITIS [None]
  - IMPAIRED HEALING [None]
  - TOOTH INFECTION [None]
  - TOOTH ABSCESS [None]
  - PNEUMONIA [None]
  - OSTEONECROSIS OF JAW [None]
